FAERS Safety Report 7084476-X (Version None)
Quarter: 2010Q4

REPORT INFORMATION
  Report Type: 
  Country: None (occurrence: None)
  Receive Date: 20101104
  Receipt Date: 20101030
  Transmission Date: 20110411
  Serious: No
  Sender: FDA-Public Use
  Company Number: US-PFIZER INC-2010138449

PATIENT
  Sex: Male

DRUGS (4)
  1. LYRICA [Suspect]
     Indication: LOCAL SWELLING
     Dosage: 75 MG, 2X/DAY
     Route: 048
     Dates: start: 20101029, end: 20101030
  2. DEXAMETHASONE [Concomitant]
     Dosage: UNK, 2X/DAY
  3. LORTAB [Concomitant]
     Dosage: UNK
  4. HYDROXYZINE [Concomitant]
     Dosage: UNK

REACTIONS (2)
  - FATIGUE [None]
  - SEDATION [None]
